FAERS Safety Report 21182746 (Version 2)
Quarter: 2022Q3

REPORT INFORMATION
  Report Type: Spontaneous
  Country: US (occurrence: US)
  Receive Date: 20220808
  Receipt Date: 20220816
  Transmission Date: 20221026
  Serious: No
  Sender: FDA-Public Use
  Company Number: US-BAXTER-2022BAX016610

PATIENT

DRUGS (1)
  1. NOREPINEPHRINE BITARTRATE [Suspect]
     Active Substance: NOREPINEPHRINE BITARTRATE
     Indication: Blood pressure abnormal
     Dosage: 0.05 MCG PER KILOGRAM PER MINUTE AS CONTINUOUS INFUSION
     Route: 065
     Dates: start: 20220722

REACTIONS (3)
  - Device infusion issue [Unknown]
  - Product administration interrupted [Unknown]
  - Hypotension [Recovered/Resolved]

NARRATIVE: CASE EVENT DATE: 20220722
